FAERS Safety Report 10909413 (Version 1)
Quarter: 2015Q1

REPORT INFORMATION
  Report Type: Spontaneous
  Country: US (occurrence: US)
  Receive Date: 20150312
  Receipt Date: 20150312
  Transmission Date: 20150721
  Serious: No
  Sender: FDA-Public Use
  Company Number: US-SA-2014SA043401

PATIENT
  Age: 74 Year
  Sex: Female

DRUGS (2)
  1. NASACORT ALLERGY 24HR [Suspect]
     Active Substance: TRIAMCINOLONE ACETONIDE
     Dosage: DOSE - 1 SPRAY EACH?NOSTRIL?FREQUENCY - USED ONE TIMES
     Route: 065
     Dates: start: 20140331, end: 20140331
  2. VICKS SINEX ULTRA SPRAY [Concomitant]

REACTIONS (2)
  - Nasal disorder [Not Recovered/Not Resolved]
  - Eye swelling [Not Recovered/Not Resolved]
